FAERS Safety Report 8535241-5 (Version None)
Quarter: 2012Q3

REPORT INFORMATION
  Report Type: 
  Country: None (occurrence: None)
  Receive Date: 20120725
  Receipt Date: 20120716
  Transmission Date: 20120928
  Serious: Yes (Hospitalization, Other)
  Sender: FDA-Public Use
  Company Number: US-ASTRAZENECA-2011SE32214

PATIENT
  Age: 63 Year
  Sex: Female

DRUGS (28)
  1. NEXIUM [Suspect]
     Route: 048
     Dates: start: 20100412
  2. AMITRIPTYLINE HYDROCHLORIDE [Concomitant]
     Indication: MIGRAINE
  3. CITRACAL D3 [Concomitant]
  4. IMITREX [Concomitant]
  5. CALCIUM CARBONATE [Concomitant]
     Dates: start: 20021104
  6. CALCIUM CARBONATE [Concomitant]
     Dosage: 600 D TWO TABLET DAILY
     Dates: start: 20100412
  7. FEXOFENADINE [Concomitant]
     Dates: start: 20021104
  8. TYLENOL [Concomitant]
     Indication: ARTHRITIS
     Dosage: AS NEEDED
     Dates: start: 20100412
  9. BISMUTH SUBSALICYLATE [Concomitant]
     Dosage: USED PERIODICALLY IF NEEDED
  10. ROLAIDS [Concomitant]
     Dosage: USED PERIODICALLY IF NEEDED
  11. NEXIUM [Suspect]
     Indication: GASTROOESOPHAGEAL REFLUX DISEASE
     Dosage: 40 MG DAILY AND SOMETIME TWICE A DAY ASS NEEDED
     Route: 048
     Dates: start: 20010101, end: 20110101
  12. TARKA [Concomitant]
     Dosage: 4 TO 240 CR ONE TABLET PER DAILY
     Dates: start: 20100412
  13. CYCLOBENZAPRIN [Concomitant]
  14. FOSAMAX [Concomitant]
     Indication: FIBROMYALGIA
     Dates: start: 20110509
  15. ICAPS [Concomitant]
     Dosage: 1 TABLET DAILY
     Dates: start: 20100412
  16. NEXIUM [Suspect]
     Route: 048
     Dates: start: 20021104
  17. NEXIUM [Suspect]
     Dosage: EVERY DAY
     Route: 048
     Dates: start: 20030101
  18. TARKA [Concomitant]
     Indication: HYPERTENSION
  19. TRAMADOL HYDROCHLORIDE [Concomitant]
     Indication: PAIN
     Dosage: AS NEEDED
  20. ALLERTEC [Concomitant]
     Dosage: 1 TABLET DAILY
     Dates: start: 20100412
  21. VICODIN [Concomitant]
     Dosage: 1 TABLET DAILY
     Dates: start: 20100412
  22. PRILOSEC OTC [Concomitant]
  23. LYRICAL [Concomitant]
     Route: 048
  24. MELOXICAM [Concomitant]
  25. AMITRIPTYLINE HYDROCHLORIDE [Concomitant]
     Dates: start: 20100412
  26. PROLIA [Concomitant]
     Indication: BONE DISORDER
     Dosage: SHOT EVERY 6 MONTH
  27. LYRICAL [Concomitant]
     Indication: FIBROMYALGIA
     Route: 048
  28. ASPIRIN [Concomitant]
     Dates: start: 20021104

REACTIONS (10)
  - FOOT FRACTURE [None]
  - RIB FRACTURE [None]
  - VITAMIN D DEFICIENCY [None]
  - EMOTIONAL DISTRESS [None]
  - OSTEOPENIA [None]
  - INTERVERTEBRAL DISC DEGENERATION [None]
  - FALL [None]
  - BONE DENSITY DECREASED [None]
  - ANKLE FRACTURE [None]
  - BONE LOSS [None]
